FAERS Safety Report 4274201-X (Version None)
Quarter: 2004Q1

REPORT INFORMATION
  Report Type: 
  Country: None (occurrence: None)
  Receive Date: 20040115
  Receipt Date: 20031229
  Transmission Date: 20041129
  Serious: Yes (Other)
  Sender: FDA-Public Use
  Company Number: 200313361DE

PATIENT
  Sex: Female

DRUGS (13)
  1. LANTUS [Suspect]
     Indication: DIABETES MELLITUS
     Dosage: 12 IU/DAY SC
     Route: 058
     Dates: start: 20001101, end: 20030101
  2. REPAGLINIDE (NOVONORM) [Concomitant]
  3. DIGITOXIN (DIGIMERCK) [Concomitant]
  4. SODIUM CHLORIDE [Concomitant]
  5. MACROGOL [Concomitant]
  6. SODIUM BICARBONATE IN PLASTIC CONTAINER [Concomitant]
  7. POTASSIUM CHLORIDE (ISOMOL) [Concomitant]
  8. TRIMIPRAMINE MALEATE (STANGYL) [Concomitant]
  9. ACETYLSALICYLIC ACID SRT [Concomitant]
  10. ENALAPRIL MALEATE [Concomitant]
  11. BISOPROLOL FUMARATE (BISOMERCK) [Concomitant]
  12. HYDROCHLOROTHIAZIDE [Concomitant]
  13. TRIAMTERENE (HYDROCHLORTHIAZIDE WITH TRIAMTERENE) [Concomitant]

REACTIONS (2)
  - MACULAR DEGENERATION [None]
  - RETINAL HAEMORRHAGE [None]
